FAERS Safety Report 5526148-6 (Version None)
Quarter: 2007Q4

REPORT INFORMATION
  Report Type: 
  Country: None (occurrence: None)
  Receive Date: 20071126
  Receipt Date: 20071109
  Transmission Date: 20080405
  Serious: Yes (Hospitalization)
  Sender: FDA-Public Use
  Company Number: GB-BRISTOL-MYERS SQUIBB COMPANY-13990080

PATIENT
  Age: 59 Year
  Sex: Male

DRUGS (5)
  1. TRAZODONE HCL [Suspect]
     Route: 048
     Dates: start: 20061018
  2. CLOPIXOL [Suspect]
     Indication: PSYCHOTIC DISORDER
     Dosage: 100MG-04OCT2006,200MG-06NOV-23NOV2006,50MG-08NOV2006 AND 10OCT2006,2MG-18OCT2006.
     Route: 030
     Dates: start: 20061101, end: 20061101
  3. PIMOZIDE [Suspect]
     Dates: start: 20061124
  4. PROCYCLIDINE HYDROCHLORIDE 2MG TAB [Concomitant]
     Dates: start: 20061114
  5. QUETIAPINE FUMARATE [Concomitant]
     Dates: end: 20070917

REACTIONS (5)
  - BLOOD CREATINE PHOSPHOKINASE INCREASED [None]
  - CONSTIPATION [None]
  - EXTRAPYRAMIDAL DISORDER [None]
  - NEUROLEPTIC MALIGNANT SYNDROME [None]
  - URINARY RETENTION [None]
